FAERS Safety Report 9716129 (Version 3)
Quarter: 2013Q4

REPORT INFORMATION
  Report Type: Spontaneous
  Country: JP (occurrence: JP)
  Receive Date: 20131127
  Receipt Date: 20131217
  Transmission Date: 20140711
  Serious: Yes (Other)
  Sender: FDA-Public Use
  Company Number: JP-PFIZER INC-2013338338

PATIENT
  Age: 56 Year
  Sex: Male

DRUGS (2)
  1. CISPLATIN [Suspect]
     Indication: SMALL CELL CARCINOMA
     Dosage: 110 MG, CYCLIC (110 MG FOR 1 DAY) (FOUR COURSES)
  2. ETOPOSIDE [Suspect]
     Indication: SMALL CELL CARCINOMA
     Dosage: 140 MG, CYCLIC (140 MG FOR 3 DAYS) (FOUR COURSES)

REACTIONS (2)
  - Bone marrow toxicity [Unknown]
  - Mucosal inflammation [Unknown]
